FAERS Safety Report 8383543-8 (Version None)
Quarter: 2012Q1

REPORT INFORMATION
  Report Type: 
  Country: None (occurrence: None)
  Receive Date: 20120323
  Receipt Date: 20110524
  Transmission Date: 20120608
  Serious: Yes (Other)
  Sender: FDA-Public Use
  Company Number: 163-21880-11032445

PATIENT
  Age: 68 Year
  Sex: Female

DRUGS (4)
  1. REVLIMID [Suspect]
  2. REVLIMID [Suspect]
     Indication: MULTIPLE MYELOMA
     Dosage: 10 MG, DAILY FOR 21 DAYS THEN 1 WEEK OFF, PO 15 , DAILY FOR 21 DAYS THEN 7 DAYS OFF, PO
     Route: 048
     Dates: start: 20110401
  3. REVLIMID [Suspect]
     Indication: MULTIPLE MYELOMA
     Dosage: 10 MG, DAILY FOR 21 DAYS THEN 1 WEEK OFF, PO 15 , DAILY FOR 21 DAYS THEN 7 DAYS OFF, PO
     Route: 048
     Dates: start: 20110119
  4. REVLIMID [Suspect]

REACTIONS (2)
  - RASH [None]
  - NEUROPATHY PERIPHERAL [None]
